FAERS Safety Report 16899674 (Version 1)
Quarter: 2019Q4

REPORT INFORMATION
  Report Type: Spontaneous
  Country: US (occurrence: US)
  Receive Date: 20191009
  Receipt Date: 20191009
  Transmission Date: 20200122
  Serious: Yes (Other)
  Sender: FDA-Public Use
  Company Number: US-SA-2019SA274774

PATIENT
  Age: 82 Year
  Sex: Female

DRUGS (1)
  1. DULCOEASE [Suspect]
     Active Substance: DOCUSATE SODIUM
     Indication: HAEMORRHOIDS
     Dosage: 2 DF, QD
     Dates: start: 20190924

REACTIONS (5)
  - Abnormal faeces [Unknown]
  - Productive cough [Unknown]
  - Cough [Unknown]
  - Choking [Unknown]
  - Balance disorder [Unknown]
